FAERS Safety Report 19405352 (Version 2)
Quarter: 2021Q2

REPORT INFORMATION
  Report Type: Spontaneous
  Country: SE (occurrence: SE)
  Receive Date: 20210611
  Receipt Date: 20210623
  Transmission Date: 20210717
  Serious: Yes (Hospitalization, Other)
  Sender: FDA-Public Use
  Company Number: SE-BRISTOL-MYERS SQUIBB COMPANY-BMS-2021-029767

PATIENT
  Age: 74 Year
  Sex: Female
  Weight: 60 kg

DRUGS (20)
  1. ELIQUIS [Suspect]
     Active Substance: APIXABAN
     Indication: CEREBROVASCULAR ACCIDENT PROPHYLAXIS
     Dosage: 2.5 MILLIGRAM, BID
     Route: 065
     Dates: start: 201709
  2. FURIX [CEFUROXIME] [Concomitant]
     Active Substance: CEFUROXIME
     Indication: DYSPNOEA
  3. DIGOXIN BIOPHAUSIA [Concomitant]
     Active Substance: DIGOXIN
     Indication: CARDIAC DISORDER
     Dosage: 1 TAB
     Route: 065
  4. IMPUGAN [FUROSEMIDE SODIUM] [Concomitant]
     Indication: CARDIAC FAILURE
     Dosage: 1 TAB, TID
     Route: 065
  5. SERETIDE [Concomitant]
     Active Substance: FLUTICASONE PROPIONATE\SALMETEROL XINAFOATE
     Indication: ASTHMA
     Route: 065
  6. BEVIPLEX FORTE [Concomitant]
     Indication: PRODUCT USED FOR UNKNOWN INDICATION
     Dosage: 1 TAB, QD
     Route: 065
  7. FURIX [CEFUROXIME] [Concomitant]
     Active Substance: CEFUROXIME
     Indication: PERIPHERAL SWELLING
     Dosage: 1 TAB
     Route: 065
  8. ELIQUIS [Suspect]
     Active Substance: APIXABAN
     Indication: CHRONIC OBSTRUCTIVE PULMONARY DISEASE
  9. PANTOPRAZOLE SODIUM. [Concomitant]
     Active Substance: PANTOPRAZOLE SODIUM
     Indication: DYSPEPSIA
     Dosage: 1 TAB, BID
     Route: 065
  10. LEVAXIN [Concomitant]
     Active Substance: LEVOTHYROXINE SODIUM
     Indication: HYPOTHYROIDISM
     Dosage: 1 TAB, QD
     Route: 065
  11. IPRATROPIUM/SALBUTAMOL ORION [Concomitant]
     Indication: PRODUCT USED FOR UNKNOWN INDICATION
     Route: 065
  12. BUVENTOL [Concomitant]
     Active Substance: ALBUTEROL SULFATE
     Indication: CHRONIC OBSTRUCTIVE PULMONARY DISEASE
     Dosage: 1?4 PUFFS 200 MICROGRAM, PRN
     Route: 065
  13. ELIQUIS [Suspect]
     Active Substance: APIXABAN
     Indication: CARDIAC FAILURE ACUTE
  14. METOPROLOL SANDOZ [METOPROLOL SUCCINATE] [Concomitant]
     Active Substance: METOPROLOL SUCCINATE
     Indication: CARDIAC DISORDER
     Dosage: 1 TAB, QD
     Route: 065
  15. FURIX [CEFUROXIME] [Concomitant]
     Active Substance: CEFUROXIME
     Indication: WEIGHT INCREASED
  16. SPIRONOLACTONE. [Concomitant]
     Active Substance: SPIRONOLACTONE
     Indication: PRODUCT USED FOR UNKNOWN INDICATION
     Dosage: 0.5 TAB, QD
     Route: 065
  17. PROPYLESS [Concomitant]
     Indication: DRY SKIN
     Dosage: UNK, BID
     Route: 065
  18. ELIQUIS [Suspect]
     Active Substance: APIXABAN
     Indication: ASTHMA
  19. COVID?19 VACCINE [Concomitant]
     Indication: COVID-19 IMMUNISATION
     Dosage: UNK
     Route: 065
  20. KALIUMKLORID ORIFARM [Concomitant]
     Indication: BLOOD POTASSIUM INCREASED
     Dosage: 1 TAB, QOD
     Route: 065

REACTIONS (4)
  - Femur fracture [Unknown]
  - Blood creatinine increased [Unknown]
  - Loss of personal independence in daily activities [Unknown]
  - Alopecia [Not Recovered/Not Resolved]

NARRATIVE: CASE EVENT DATE: 202012
